FAERS Safety Report 5977596-1 (Version None)
Quarter: 2008Q4

REPORT INFORMATION
  Report Type: 
  Country: None (occurrence: None)
  Receive Date: 20081201
  Receipt Date: 20081201
  Transmission Date: 20090506
  Serious: Yes (Life-Threatening, Other)
  Sender: FDA-Public Use
  Company Number: None

PATIENT
  Age: 24 Year
  Sex: Male
  Weight: 72.5755 kg

DRUGS (1)
  1. AMBIEN CR [Suspect]

REACTIONS (10)
  - ABNORMAL BEHAVIOUR [None]
  - ALCOHOL USE [None]
  - AMNESIA [None]
  - CONTUSION [None]
  - DISINHIBITION [None]
  - GAIT DISTURBANCE [None]
  - HAND FRACTURE [None]
  - LACERATION [None]
  - NODULE [None]
  - SELF INJURIOUS BEHAVIOUR [None]
